FAERS Safety Report 6940145-5 (Version None)
Quarter: 2010Q3

REPORT INFORMATION
  Report Type: 
  Country: None (occurrence: None)
  Receive Date: 20100825
  Receipt Date: 20100816
  Transmission Date: 20110219
  Serious: Yes (Hospitalization, Other)
  Sender: FDA-Public Use
  Company Number: US-NOVOPROD-313222

PATIENT
  Age: 52 Year
  Sex: Female

DRUGS (21)
  1. VICTOZA [Suspect]
     Indication: TYPE 2 DIABETES MELLITUS
     Dosage: 1.2 MG, QD
     Route: 058
     Dates: start: 20100601, end: 20100810
  2. VICTOZA [Suspect]
     Dosage: 1.2 MG, QD
     Dates: start: 20100813
  3. METFORMIN [Concomitant]
     Indication: TYPE 2 DIABETES MELLITUS
     Dosage: 2500 MG, QD
  4. GLIPIZIDE [Concomitant]
     Indication: TYPE 2 DIABETES MELLITUS
     Dosage: 5 MG, QD
  5. NORVASC [Concomitant]
     Indication: HYPERTENSION
     Dosage: 20 MG, QD
  6. PHENERGAN HCL [Concomitant]
     Indication: NAUSEA
     Dosage: 25 MG, QD
  7. WELLBUTRIN [Concomitant]
     Indication: DEPRESSION
     Dosage: 150 MG, QD
  8. CAPTOPRIL [Concomitant]
     Indication: BLOOD PRESSURE INCREASED
     Dosage: 1000 MG, BID
  9. ACETAZOLAMIDE [Concomitant]
     Indication: FLUID RETENTION
     Dosage: 500 MG, BID
  10. ACETAZOLAMIDE [Concomitant]
     Indication: MIGRAINE
  11. FEXOFENADINE HCL [Concomitant]
     Indication: MULTIPLE ALLERGIES
     Dosage: 180 MG, QD
  12. BACLOFEN [Concomitant]
     Indication: BACK PAIN
     Dosage: 10 MG, TID
  13. ANTARA (MICRONIZED) [Concomitant]
     Indication: BLOOD CHOLESTEROL INCREASED
     Dosage: 130 MG, QD
  14. ASPIRIN [Concomitant]
     Indication: PROPHYLAXIS
     Dosage: 81 MG, QD
  15. MULTIVITAMIN                       /00097801/ [Concomitant]
     Indication: PROPHYLAXIS
     Dosage: 1 TAB, QD
  16. FISH OIL [Concomitant]
     Indication: PROPHYLAXIS
     Dosage: UNK
  17. YEAST [Concomitant]
     Indication: PROPHYLAXIS
     Dosage: 600 MG, QD
  18. VITAMIN D3 [Concomitant]
     Indication: PRODUCT USED FOR UNKNOWN INDICATION
     Dosage: 1000 IU, QD
  19. FOLIC ACID [Concomitant]
     Indication: PROPHYLAXIS
     Dosage: 400 MG, QD
  20. VITAMIN B-12 [Concomitant]
     Indication: ANAEMIA
     Dosage: UNK
  21. CLONAZEPAM [Concomitant]
     Indication: SLEEP DISORDER
     Dosage: UNK

REACTIONS (2)
  - CHOLELITHIASIS [None]
  - PANCREATITIS [None]
